FAERS Safety Report 14759115 (Version 1)
Quarter: 2018Q2

REPORT INFORMATION
  Report Type: Spontaneous
  Country: CA (occurrence: CA)
  Receive Date: 20180413
  Receipt Date: 20180413
  Transmission Date: 20180711
  Serious: Yes (Other)
  Sender: FDA-Public Use
  Company Number: CA-TEVA-2018-CA-879105

PATIENT
  Age: 50 Year
  Sex: Female
  Weight: 107 kg

DRUGS (6)
  1. LISINOPRIL / HYDROCHLOROTHIAZIDE [Concomitant]
     Active Substance: HYDROCHLOROTHIAZIDE\LISINOPRIL
  2. NIFEDIPINE. [Concomitant]
     Active Substance: NIFEDIPINE
  3. NIFEDIPINE. [Concomitant]
     Active Substance: NIFEDIPINE
  4. MELOXICAM. [Suspect]
     Active Substance: MELOXICAM
     Indication: ARTHRALGIA
     Route: 048
  5. MYLAN-BUPROPION XL [Concomitant]
     Active Substance: BUPROPION
  6. RATIO-VENLAFAXINE XR [Concomitant]

REACTIONS (3)
  - Lip swelling [Unknown]
  - Pruritus [Unknown]
  - Erythema [Unknown]
